FAERS Safety Report 16244583 (Version 1)
Quarter: 2019Q2

REPORT INFORMATION
  Report Type: Spontaneous
  Country: US (occurrence: US)
  Receive Date: 20190426
  Receipt Date: 20190426
  Transmission Date: 20190711
  Serious: Yes (Other)
  Sender: FDA-Public Use
  Company Number: US-PFIZER INC-2019171841

PATIENT
  Age: 59 Year
  Sex: Female
  Weight: 65.77 kg

DRUGS (5)
  1. NICOTINE. [Concomitant]
     Active Substance: NICOTINE
  2. CITALOPRAM [Concomitant]
     Active Substance: CITALOPRAM HYDROBROMIDE
     Dosage: UNK
  3. XANAX [Concomitant]
     Active Substance: ALPRAZOLAM
     Indication: ANXIETY
     Dosage: UNK
  4. CHANTIX [Suspect]
     Active Substance: VARENICLINE TARTRATE
     Indication: SMOKING CESSATION THERAPY
     Dosage: 1 MG, 2X/DAY (ONE IN THE AM AND ONE IN THE PM )
     Route: 048
  5. NICOTINE. [Concomitant]
     Active Substance: NICOTINE

REACTIONS (5)
  - Gastrointestinal pain [Unknown]
  - Furuncle [Unknown]
  - Drug ineffective [Unknown]
  - Pneumothorax [Unknown]
  - Malaise [Unknown]

NARRATIVE: CASE EVENT DATE: 201808
